FAERS Safety Report 8447679 (Version 8)
Quarter: 2014Q2

REPORT INFORMATION
  Report Type: Spontaneous
  Country: US (occurrence: US)
  Receive Date: 20120308
  Receipt Date: 20140606
  Transmission Date: 20141212
  Serious: Yes (Other)
  Sender: FDA-Public Use
  Company Number: US-JNJFOC-2010009148

PATIENT
  Age: 71 Year
  Sex: Female
  Weight: 90.7 kg

DRUGS (7)
  1. NICOTROL NASAL SPRAY [Suspect]
     Indication: SMOKING CESSATION THERAPY
     Route: 045
  2. NICOTROL NASAL SPRAY [Suspect]
     Indication: SMOKING CESSATION THERAPY
     Route: 045
     Dates: start: 201003, end: 201004
  3. NICOTROL INHALER [Suspect]
     Indication: SMOKING CESSATION THERAPY
     Route: 055
     Dates: start: 201004
  4. ALBUTEROL [Concomitant]
     Indication: DYSPNOEA
     Route: 065
  5. LEVOTHYROXINE [Concomitant]
     Indication: THYROID DISORDER
     Dosage: 125 UG
     Route: 048
  6. NORVASC [Concomitant]
     Indication: HYPERTENSION
     Dosage: DAILY DOSE TEXT: UNKNOWN
     Route: 048
  7. VITAMINS NOS [Concomitant]
     Indication: PRODUCT USED FOR UNKNOWN INDICATION
     Route: 065

REACTIONS (38)
  - Increased upper airway secretion [Unknown]
  - Drug administration error [Unknown]
  - Oropharyngeal pain [Unknown]
  - Impaired healing [Unknown]
  - Umbilical hernia [Unknown]
  - Traumatic lung injury [Unknown]
  - Thinking abnormal [Unknown]
  - Haemorrhage [Not Recovered/Not Resolved]
  - Depressed mood [Not Recovered/Not Resolved]
  - Lung disorder [Unknown]
  - Feeling abnormal [Unknown]
  - Cough [Not Recovered/Not Resolved]
  - Dry mouth [Unknown]
  - Headache [Not Recovered/Not Resolved]
  - Nausea [Not Recovered/Not Resolved]
  - Throat irritation [Not Recovered/Not Resolved]
  - Salivary duct obstruction [Not Recovered/Not Resolved]
  - Sinus disorder [Unknown]
  - Salivary gland disorder [Unknown]
  - Burning sensation mucosal [Not Recovered/Not Resolved]
  - Night sweats [Unknown]
  - Nasal disorder [Unknown]
  - Dysgeusia [Unknown]
  - Feeling hot [Unknown]
  - Pharyngeal stenosis [Unknown]
  - Dyspnoea [Unknown]
  - Dysphagia [Unknown]
  - Mastication disorder [Unknown]
  - Tongue disorder [Unknown]
  - Lip disorder [Unknown]
  - Choking [Unknown]
  - Dry throat [Unknown]
  - Hypoaesthesia oral [Unknown]
  - Agitation [Unknown]
  - Insomnia [Unknown]
  - Uterine disorder [Unknown]
  - Uterine leiomyoma [Unknown]
  - Product quality issue [Unknown]
